FAERS Safety Report 9168390 (Version 1)
Quarter: 2013Q1

REPORT INFORMATION
  Report Type: Spontaneous
  Country: US (occurrence: US)
  Receive Date: 20130318
  Receipt Date: 20130318
  Transmission Date: 20140127
  Serious: No
  Sender: FDA-Public Use
  Company Number: US-009507513-1303USA006948

PATIENT
  Sex: Female

DRUGS (2)
  1. ZETIA [Suspect]
     Route: 048
  2. SIMVASTATIN [Suspect]
     Dosage: UNK

REACTIONS (1)
  - Myalgia [Unknown]
